FAERS Safety Report 21868035 (Version 3)
Quarter: 2023Q1

REPORT INFORMATION
  Report Type: Spontaneous
  Country: JP (occurrence: JP)
  Receive Date: 20230116
  Receipt Date: 20230130
  Transmission Date: 20230417
  Serious: Yes (Death, Other)
  Sender: FDA-Public Use
  Company Number: JP-MSD-2211JPN003898J

PATIENT
  Sex: Male

DRUGS (1)
  1. STROMECTOL [Suspect]
     Active Substance: IVERMECTIN
     Dosage: UNK
     Route: 048
     Dates: start: 2022

REACTIONS (3)
  - Hepatic vascular disorder [Fatal]
  - Death [Fatal]
  - Inappropriate schedule of product administration [Unknown]

NARRATIVE: CASE EVENT DATE: 20220101
